FAERS Safety Report 11145123 (Version 1)
Quarter: 2015Q2

REPORT INFORMATION
  Report Type: Report from Study
  Country: CA (occurrence: CA)
  Receive Date: 20150526
  Receipt Date: 20150526
  Transmission Date: 20150821
  Serious: Yes (Other)
  Sender: FDA-Public Use
  Company Number: CA-JNJFOC-20150515357

PATIENT
  Age: 55 Year
  Sex: Female
  Weight: 79.6 kg

DRUGS (3)
  1. IMURAN [Concomitant]
     Active Substance: AZATHIOPRINE
     Route: 065
  2. REMICADE [Suspect]
     Active Substance: INFLIXIMAB
     Indication: CROHN^S DISEASE
     Dosage: THE PATIENT HAD TOTAL OF 4 INFUSIONS AT THE TIME OF THIS REPORT
     Route: 042
     Dates: start: 20150119
  3. PREDNISONE. [Concomitant]
     Active Substance: PREDNISONE
     Route: 065

REACTIONS (2)
  - Implant site reaction [Unknown]
  - Breast reconstruction [Unknown]

NARRATIVE: CASE EVENT DATE: 201504
